FAERS Safety Report 25787426 (Version 1)
Quarter: 2025Q3

REPORT INFORMATION
  Report Type: Spontaneous
  Country: US (occurrence: US)
  Receive Date: 20250910
  Receipt Date: 20250910
  Transmission Date: 20251020
  Serious: Yes (Life-Threatening, Hospitalization)
  Sender: MYLAN
  Company Number: US-MYLANLABS-2025M1076755

PATIENT
  Age: 22 Year
  Sex: Female

DRUGS (8)
  1. TRANEXAMIC ACID [Suspect]
     Active Substance: TRANEXAMIC ACID
     Indication: Epistaxis
  2. TRANEXAMIC ACID [Suspect]
     Active Substance: TRANEXAMIC ACID
     Route: 048
  3. TRANEXAMIC ACID [Suspect]
     Active Substance: TRANEXAMIC ACID
     Route: 048
  4. TRANEXAMIC ACID [Suspect]
     Active Substance: TRANEXAMIC ACID
  5. OXYMETAZOLINE [Suspect]
     Active Substance: OXYMETAZOLINE
     Indication: Epistaxis
  6. OXYMETAZOLINE [Suspect]
     Active Substance: OXYMETAZOLINE
     Route: 065
  7. OXYMETAZOLINE [Suspect]
     Active Substance: OXYMETAZOLINE
     Route: 065
  8. OXYMETAZOLINE [Suspect]
     Active Substance: OXYMETAZOLINE

REACTIONS (1)
  - Drug ineffective [Unknown]
